FAERS Safety Report 17556601 (Version 4)
Quarter: 2020Q2

REPORT INFORMATION
  Report Type: Report from Study
  Country: US (occurrence: US)
  Receive Date: 20200318
  Receipt Date: 20200423
  Transmission Date: 20200713
  Serious: Yes (Hospitalization)
  Sender: FDA-Public Use
  Company Number: NVSC2020US077946

PATIENT
  Age: 48 Year
  Sex: Male
  Weight: 90.3 kg

DRUGS (2)
  1. LAMPRENE [Suspect]
     Active Substance: CLOFAZIMINE
     Dosage: 100 MG, QD
     Route: 048
     Dates: start: 20200401
  2. LAMPRENE [Suspect]
     Active Substance: CLOFAZIMINE
     Indication: MYCOBACTERIUM ABSCESSUS INFECTION
     Dosage: 100 MG, QD
     Route: 048
     Dates: start: 20190803

REACTIONS (5)
  - Back pain [Recovered/Resolved]
  - Liver function test increased [Recovering/Resolving]
  - Pneumonia [Recovered/Resolved]
  - Pleural effusion [Recovered/Resolved]
  - Cardiac failure congestive [Recovered/Resolved]

NARRATIVE: CASE EVENT DATE: 20200212
